FAERS Safety Report 15258427 (Version 2)
Quarter: 2018Q3

REPORT INFORMATION
  Report Type: Spontaneous
  Country: US (occurrence: US)
  Receive Date: 20180809
  Receipt Date: 20180813
  Transmission Date: 20181010
  Serious: No
  Sender: FDA-Public Use
  Company Number: US-UNITED THERAPEUTICS-UNT-2018-011967

PATIENT
  Sex: Female
  Weight: 65.76 kg

DRUGS (2)
  1. REMODULIN [Suspect]
     Active Substance: TREPROSTINIL
     Indication: PULMONARY HYPERTENSION
     Dosage: 0.05 ?G/KG, CONTINUING
     Route: 041
     Dates: start: 20180628
  2. REMODULIN [Suspect]
     Active Substance: TREPROSTINIL
     Indication: PULMONARY ARTERIAL HYPERTENSION

REACTIONS (5)
  - Suture related complication [Unknown]
  - Overdose [Unknown]
  - Dermatitis contact [Not Recovered/Not Resolved]
  - Dizziness [Unknown]
  - Complication associated with device [Unknown]

NARRATIVE: CASE EVENT DATE: 2018
